FAERS Safety Report 8282094-9 (Version None)
Quarter: 2012Q2

REPORT INFORMATION
  Report Type: 
  Country: None (occurrence: None)
  Receive Date: 20120413
  Receipt Date: 20120402
  Transmission Date: 20120825
  Serious: Yes (Other)
  Sender: FDA-Public Use
  Company Number: BR-AMGEN-BRASP2012022174

PATIENT
  Age: 46 Year
  Sex: Female
  Weight: 64 kg

DRUGS (6)
  1. METHOTREXATE [Concomitant]
     Dosage: UNK MG, WEEKLY
  2. ARAVA [Concomitant]
     Dosage: UNK
  3. ENBREL [Suspect]
     Indication: RHEUMATOID ARTHRITIS
     Dosage: 50 MG, WEEKLY
     Route: 058
     Dates: start: 20120201
  4. REUQUINOL [Concomitant]
     Dosage: UNK
  5. OMEPRAZOLE [Concomitant]
     Dosage: 20 MG, 1X/DAY
  6. FOLIC ACID [Concomitant]
     Dosage: UNK

REACTIONS (3)
  - APPLICATION SITE ERYTHEMA [None]
  - RHEUMATOID ARTHRITIS [None]
  - OEDEMA PERIPHERAL [None]
